FAERS Safety Report 9388105 (Version 1)
Quarter: 2013Q3

REPORT INFORMATION
  Report Type: Spontaneous
  Country: US (occurrence: None)
  Receive Date: 20130703
  Receipt Date: 20130703
  Transmission Date: 20140515
  Serious: Yes (Other)
  Sender: FDA-Public Use
  Company Number: ALK-2013-001741

PATIENT
  Sex: Female
  Weight: 54.4 kg

DRUGS (1)
  1. VIVITROL (VIVITROL_NDA) INJECTION, 380MG [Suspect]
     Indication: DRUG DEPENDENCE
     Route: 030

REACTIONS (4)
  - Injection site abscess [None]
  - Injection site reaction [None]
  - Injection site haematoma [None]
  - Injection site induration [None]
